FAERS Safety Report 8269363-3 (Version None)
Quarter: 2012Q2

REPORT INFORMATION
  Report Type: 
  Country: None (occurrence: None)
  Receive Date: 20120409
  Receipt Date: 20120326
  Transmission Date: 20120825
  Serious: Yes (Death)
  Sender: FDA-Public Use
  Company Number: JP-ROCHE-1033352

PATIENT
  Sex: Male
  Weight: 64 kg

DRUGS (7)
  1. LEVOLEUCOVORIN CALCIUM [Concomitant]
     Indication: COLON CANCER METASTATIC
     Dosage: DOSAGE IS UNCERTAIN.
     Route: 041
  2. FLUOROURACIL [Concomitant]
     Dosage: DOSAGE IS UNCERTAIN.
     Route: 041
  3. FLUOROURACIL [Concomitant]
  4. AVASTIN [Suspect]
     Indication: COLON CANCER METASTATIC
     Route: 041
     Dates: start: 20111101, end: 20111206
  5. FLUOROURACIL [Concomitant]
     Indication: COLON CANCER METASTATIC
     Dosage: DOSAGE IS UNCERTAIN.
     Route: 040
  6. FLUOROURACIL [Concomitant]
  7. OXALIPLATIN [Concomitant]
     Indication: COLON CANCER METASTATIC
     Dosage: DOSAGE IS UNCERTAIN.
     Route: 041

REACTIONS (3)
  - SEPSIS [None]
  - GASTROINTESTINAL PERFORATION [None]
  - INFECTIOUS PERITONITIS [None]
